FAERS Safety Report 5742487-8 (Version None)
Quarter: 2008Q2

REPORT INFORMATION
  Report Type: 
  Country: None (occurrence: None)
  Receive Date: 20080515
  Receipt Date: 20080507
  Transmission Date: 20081010
  Serious: Yes (Hospitalization)
  Sender: FDA-Public Use
  Company Number: 2008SP008534

PATIENT
  Age: 68 Year
  Sex: Female
  Weight: 65 kg

DRUGS (6)
  1. PEGINTERFERON ALFA-2B           (PEGINTERFERON ALFA-2B) [Suspect]
     Indication: HEPATITIS C
     Dosage: 100 MCG;QW;SC
     Route: 058
     Dates: start: 20070530, end: 20080430
  2. RIBAVIRIN [Suspect]
     Indication: HEPATITIS C
     Dosage: 1000 MG;QD;PO
     Route: 048
     Dates: start: 20070530, end: 20080430
  3. ESCITALOPRAM [Concomitant]
  4. LYRICA [Concomitant]
  5. PANTHENOL [Concomitant]
  6. XINSAL [Concomitant]

REACTIONS (5)
  - BRADYCARDIA [None]
  - DEMENTIA [None]
  - HYPOTHERMIA [None]
  - HYPOTHYROIDISM [None]
  - MYXOEDEMA COMA [None]
